FAERS Safety Report 12281687 (Version 1)
Quarter: 2016Q2

REPORT INFORMATION
  Report Type: Spontaneous
  Country: US (occurrence: None)
  Receive Date: 20160418
  Receipt Date: 20160418
  Transmission Date: 20160815
  Serious: Yes (Hospitalization)
  Sender: FDA-Public Use
  Company Number: None

PATIENT
  Age: 46 Year
  Sex: Female
  Weight: 60.78 kg

DRUGS (4)
  1. SKELAXIN [Suspect]
     Active Substance: METAXALONE
     Indication: BACK PAIN
     Route: 048
     Dates: start: 20100501, end: 20100506
  2. ACETAMINOPHEN. [Concomitant]
     Active Substance: ACETAMINOPHEN
  3. SKELAXIN [Suspect]
     Active Substance: METAXALONE
     Indication: MUSCLE SPASMS
     Route: 048
     Dates: start: 20100501, end: 20100506
  4. ATENOLOL. [Concomitant]
     Active Substance: ATENOLOL

REACTIONS (6)
  - Muscle spasms [None]
  - Hypersensitivity [None]
  - Aspartate aminotransferase increased [None]
  - Alcohol intolerance [None]
  - Malaise [None]
  - Alanine aminotransferase increased [None]

NARRATIVE: CASE EVENT DATE: 20100506
